FAERS Safety Report 4654867-2 (Version None)
Quarter: 2005Q2

REPORT INFORMATION
  Report Type: 
  Country: None (occurrence: None)
  Receive Date: 20050506
  Receipt Date: 20050131
  Transmission Date: 20051028
  Serious: Yes (Congenital Anomaly)
  Sender: FDA-Public Use
  Company Number: GB-MERCK-0502GBR00015

PATIENT
  Weight: 2 kg

DRUGS (3)
  1. SIMVASTATIN [Suspect]
  2. METFORMIN [Concomitant]
  3. FOLIC ACID [Concomitant]

REACTIONS (2)
  - CONGENITAL DIAPHRAGMATIC HERNIA [None]
  - PREMATURE LABOUR [None]
